FAERS Safety Report 4956819-1 (Version None)
Quarter: 2006Q1

REPORT INFORMATION
  Report Type: 
  Country: None (occurrence: None)
  Receive Date: 20060323
  Receipt Date: 20060303
  Transmission Date: 20060701
  Serious: Yes (Hospitalization)
  Sender: FDA-Public Use
  Company Number: GB-2006-006123

PATIENT
  Age: 64 Year
  Sex: Female

DRUGS (6)
  1. SOTALOL HYDROCHLORIDE [Suspect]
     Indication: ATRIAL FIBRILLATION
  2. VERAPAMIL [Suspect]
     Indication: ATRIAL FIBRILLATION
     Dosage: 80 MG, 3X/DAY, ORAL
     Route: 048
  3. DIGOXIN [Suspect]
     Indication: ATRIAL FIBRILLATION
  4. WARFARIN SODIUM [Concomitant]
  5. CO-AMILOFRUSE (AMILORIDE HYDROCHLORIDE) [Concomitant]
  6. PERINDOPRIL (PERINDOPRIL) [Concomitant]

REACTIONS (21)
  - ABDOMINAL PAIN [None]
  - ATRIAL FIBRILLATION [None]
  - BLOOD SODIUM DECREASED [None]
  - BRADYCARDIA [None]
  - CARDIOACTIVE DRUG LEVEL DECREASED [None]
  - CARDIOMEGALY [None]
  - COUGH [None]
  - DEPRESSED LEVEL OF CONSCIOUSNESS [None]
  - DRUG INEFFECTIVE [None]
  - DRUG INTERACTION POTENTIATION [None]
  - DYSPNOEA [None]
  - HAEMODIALYSIS [None]
  - HEART RATE INCREASED [None]
  - HYPOTENSION [None]
  - INTERNATIONAL NORMALISED RATIO INCREASED [None]
  - LIVEDO RETICULARIS [None]
  - LIVER FUNCTION TEST ABNORMAL [None]
  - METABOLIC ACIDOSIS [None]
  - RENAL FAILURE [None]
  - RESPIRATORY RATE INCREASED [None]
  - RESUSCITATION [None]
